FAERS Safety Report 25989247 (Version 1)
Quarter: 2025Q4

REPORT INFORMATION
  Report Type: Report from Study
  Country: CR (occurrence: CR)
  Receive Date: 20251103
  Receipt Date: 20251103
  Transmission Date: 20260117
  Serious: Yes (Disabling)
  Sender: NOVARTIS
  Company Number: CR-002147023-NVSC2025CR169055

PATIENT
  Sex: Male

DRUGS (1)
  1. EXFORGE HCT [Suspect]
     Active Substance: AMLODIPINE BESYLATE\HYDROCHLOROTHIAZIDE\VALSARTAN
     Indication: Hypertension
     Dosage: 1 DOSAGE FORM, QD (5/160/12.5 MG ORAL BY MOUTH)
     Route: 048
     Dates: start: 2023, end: 20250812

REACTIONS (4)
  - Pollakiuria [Recovering/Resolving]
  - Bradyarrhythmia [Recovering/Resolving]
  - Peripheral coldness [Recovered/Resolved]
  - Feeling cold [Recovered/Resolved]
